APPROVED DRUG PRODUCT: OLOPATADINE HYDROCHLORIDE
Active Ingredient: OLOPATADINE HYDROCHLORIDE
Strength: EQ 0.2% BASE
Dosage Form/Route: SOLUTION/DROPS;OPHTHALMIC
Application: A209420 | Product #001
Applicant: ALEMBIC PHARMACEUTICALS LTD
Approved: Apr 29, 2019 | RLD: No | RS: No | Type: OTC